FAERS Safety Report 4932003-2 (Version None)
Quarter: 2006Q1

REPORT INFORMATION
  Report Type: 
  Country: None (occurrence: None)
  Receive Date: 20060303
  Receipt Date: 20060217
  Transmission Date: 20060701
  Serious: Yes (Death, Hospitalization)
  Sender: FDA-Public Use
  Company Number: FR-GLAXOSMITHKLINE-B0412859A

PATIENT
  Age: 41 Year
  Sex: Female

DRUGS (4)
  1. AUGMENTIN '125' [Suspect]
     Indication: TOOTH ABSCESS
     Route: 048
     Dates: start: 20050310
  2. AMOXICILLINE GNR [Suspect]
     Indication: TOOTH ABSCESS
     Dosage: 500MG TWICE PER DAY
     Route: 048
     Dates: start: 20050310
  3. AVLOCARDYL [Concomitant]
     Indication: TACHYCARDIA
  4. ULTRALEVURE [Concomitant]
     Dosage: 2CAP THREE TIMES PER DAY
     Route: 048

REACTIONS (19)
  - ANURIA [None]
  - ASPIRATION [None]
  - CARDIAC ARREST [None]
  - CARDIOGENIC SHOCK [None]
  - COMA [None]
  - CYANOSIS [None]
  - DIARRHOEA [None]
  - DYSPNOEA [None]
  - HAEMODYNAMIC INSTABILITY [None]
  - HEPATIC FAILURE [None]
  - HYPERKALAEMIA [None]
  - HYPOPERFUSION [None]
  - MALAISE [None]
  - METABOLIC ACIDOSIS [None]
  - MULTI-ORGAN FAILURE [None]
  - RENAL FAILURE ACUTE [None]
  - RESPIRATORY ARREST [None]
  - SYNCOPE [None]
  - VOMITING [None]
